FAERS Safety Report 7815946-1 (Version None)
Quarter: 2011Q4

REPORT INFORMATION
  Report Type: 
  Country: None (occurrence: None)
  Receive Date: 20111014
  Receipt Date: 20110923
  Transmission Date: 20120403
  Serious: Yes (Other)
  Sender: FDA-Public Use
  Company Number: US-ROCHE-1001433

PATIENT
  Age: 48 Year
  Sex: Female

DRUGS (3)
  1. ACTIVASE [Suspect]
     Indication: AORTIC THROMBOSIS
     Route: 040
  2. ASPIRIN [Suspect]
     Indication: AORTIC THROMBOSIS
  3. REFLUDAN [Suspect]
     Indication: AORTIC THROMBOSIS

REACTIONS (4)
  - ASTHENIA [None]
  - PAIN [None]
  - WOUND HAEMORRHAGE [None]
  - HYPOAESTHESIA [None]
